FAERS Safety Report 7465864-6 (Version None)
Quarter: 2011Q2

REPORT INFORMATION
  Report Type: 
  Country: None (occurrence: None)
  Receive Date: 20110509
  Receipt Date: 20110505
  Transmission Date: 20111010
  Serious: Yes (Disabling)
  Sender: FDA-Public Use
  Company Number: PT-ABBOTT-11P-130-0724026-00

PATIENT
  Sex: Male
  Weight: 70 kg

DRUGS (7)
  1. FOLICIL [Concomitant]
     Indication: ANKYLOSING SPONDYLITIS
     Dosage: 1 X WEEK
     Route: 048
     Dates: start: 20030101
  2. NEXIUM [Concomitant]
     Indication: PROPHYLAXIS
     Route: 048
     Dates: start: 20100101
  3. HUMIRA [Suspect]
     Indication: ANKYLOSING SPONDYLITIS
     Route: 058
     Dates: start: 20100726, end: 20100809
  4. SALAZOPIRINE EN GASTRO-RESISTANT TABLET [Concomitant]
     Indication: ANKYLOSING SPONDYLITIS
     Route: 048
  5. ALENDRONIC ACID [Concomitant]
     Indication: OSTEOPOROSIS
     Dosage: 1X WEEK
     Route: 048
     Dates: start: 20070101
  6. INDOMETHACIN SODIUM [Concomitant]
     Indication: ANKYLOSING SPONDYLITIS
     Route: 054
     Dates: start: 20030101
  7. LEDERTREXATO [Concomitant]
     Indication: ANKYLOSING SPONDYLITIS
     Dosage: 1 X WEEK
     Route: 048
     Dates: start: 20030101

REACTIONS (3)
  - DIZZINESS [None]
  - DISTURBANCE IN ATTENTION [None]
  - VERTIGO [None]
